FAERS Safety Report 23535454 (Version 2)
Quarter: 2024Q1

REPORT INFORMATION
  Report Type: Spontaneous
  Country: US (occurrence: None)
  Receive Date: 20240218
  Receipt Date: 20240313
  Transmission Date: 20240410
  Serious: No
  Sender: FDA-Public Use
  Company Number: 2024A030096

PATIENT
  Sex: Female

DRUGS (1)
  1. CALQUENCE [Suspect]
     Active Substance: ACALABRUTINIB
     Dosage: UNKNOWN UNKNOWN
     Route: 048

REACTIONS (5)
  - Hypoacusis [Unknown]
  - Anxiety [Unknown]
  - Anxiety [Unknown]
  - Blood test [Unknown]
  - Intentional product use issue [Unknown]
